FAERS Safety Report 4970061-X (Version None)
Quarter: 2006Q2

REPORT INFORMATION
  Report Type: 
  Country: None (occurrence: None)
  Receive Date: 20060406
  Receipt Date: 20060321
  Transmission Date: 20061013
  Serious: Yes (Hospitalization, Other)
  Sender: FDA-Public Use
  Company Number: US-2006-005412

PATIENT
  Age: 67 Year
  Sex: Male
  Weight: 93 kg

DRUGS (35)
  1. CAMPATH [Suspect]
     Indication: CHRONIC LYMPHOCYTIC LEUKAEMIA
     Dosage: SEE IMAGE
     Route: 058
     Dates: start: 20050801, end: 20050801
  2. CAMPATH [Suspect]
     Indication: CHRONIC LYMPHOCYTIC LEUKAEMIA
     Dosage: SEE IMAGE
     Route: 058
     Dates: start: 20050803, end: 20050803
  3. CAMPATH [Suspect]
     Indication: CHRONIC LYMPHOCYTIC LEUKAEMIA
     Dosage: SEE IMAGE
     Route: 058
     Dates: start: 20050812, end: 20051215
  4. FLUDARA [Suspect]
     Indication: CHRONIC LYMPHOCYTIC LEUKAEMIA
     Dosage: 25 MG/M2 D 1,2,3 Q4WEEKS, INTRAVENOUS
     Route: 042
     Dates: start: 20051003, end: 20051110
  5. LEUKINE [Suspect]
     Indication: COLONY STIMULATING FACTOR PROPHYLAXIS
     Dosage: 500 UG X7 DAYS/EACH MONTH, SUBCUTANEOUS
     Route: 058
     Dates: start: 20050922, end: 20060301
  6. RITUXIMAB [Concomitant]
  7. CYCLOPHOSPHAMIDE [Concomitant]
  8. NEUPOGEN [Concomitant]
  9. PROCRIT [Concomitant]
  10. BENADRYL ^ACHE^ (AMMONIUM CHLORIDE, DIPHENHYDRAMINE HYDROCHLORIDE, MEN [Concomitant]
  11. TYLENOL (CAPLET) [Concomitant]
  12. ALLOPURINOL [Concomitant]
  13. AMARYL [Concomitant]
  14. LEVOXYL [Concomitant]
  15. LIPITOR /NET/ (ATORVASTATIN CALCIUM) [Concomitant]
  16. SINGULAIR [Concomitant]
  17. TOPROL-XL [Concomitant]
  18. ACYCLOVIR [Concomitant]
  19. FLUCONAZOLE [Concomitant]
  20. SULFAMETHOXAZOLE + TRIMETHOPRIM [Concomitant]
  21. ANZEMET [Concomitant]
  22. DRIXORAL [Concomitant]
  23. LAMISIL /00992601/(TERBINAFINE) [Concomitant]
  24. PROVENTIL [Concomitant]
  25. VALIUM [Concomitant]
  26. HYDRALAZINE [Concomitant]
  27. HYZAAR [Concomitant]
  28. MEGACE [Concomitant]
  29. VALTREX [Concomitant]
  30. PREVACID [Concomitant]
  31. CLARITIN [Concomitant]
  32. NASACORT [Concomitant]
  33. ZYRTEC [Concomitant]
  34. NORVASC /DEN/ (AMLODIPINE BESILATE) [Concomitant]
  35. ZYVOX [Concomitant]

REACTIONS (6)
  - BONE MARROW FAILURE [None]
  - CHRONIC LYMPHOCYTIC LEUKAEMIA TRANSFORMATION [None]
  - COOMBS POSITIVE HAEMOLYTIC ANAEMIA [None]
  - CYTOMEGALOVIRUS INFECTION [None]
  - EOSINOPHILIA [None]
  - MARROW HYPERPLASIA [None]
